FAERS Safety Report 8512457-5 (Version None)
Quarter: 2012Q3

REPORT INFORMATION
  Report Type: 
  Country: None (occurrence: None)
  Receive Date: 20120716
  Receipt Date: 20120706
  Transmission Date: 20120928
  Serious: Yes (Hospitalization)
  Sender: FDA-Public Use
  Company Number: FR-ROCHE-1000648

PATIENT
  Sex: Male
  Weight: 84 kg

DRUGS (6)
  1. IRBESARTAN [Concomitant]
     Indication: HYPERTENSION
     Dates: start: 20101001
  2. FUROSEMIDE [Concomitant]
     Indication: HYPERTENSION
  3. MIRCERA [Suspect]
     Indication: NEPHROGENIC ANAEMIA
     Route: 058
     Dates: start: 20110817, end: 20110924
  4. NEBIVOLOL HCL [Concomitant]
     Indication: HYPERTENSION
  5. EUPRESSYL [Concomitant]
     Indication: HYPERTENSION
     Dates: end: 20110922
  6. LERCANIDIPINE [Concomitant]
     Indication: HYPERTENSION
     Dates: end: 20110922

REACTIONS (3)
  - DIALYSIS [None]
  - HEADACHE [None]
  - CONVULSION [None]
